FAERS Safety Report 6260623-4 (Version None)
Quarter: 2009Q3

REPORT INFORMATION
  Report Type: 
  Country: None (occurrence: None)
  Receive Date: 20090708
  Receipt Date: 20090602
  Transmission Date: 20100115
  Serious: No
  Sender: FDA-Public Use
  Company Number: US-BAYER-200911719BCC

PATIENT
  Age: 59 Year
  Sex: Male
  Weight: 91 kg

DRUGS (2)
  1. ASPIRIN [Suspect]
     Indication: JOINT SPRAIN
     Route: 048
     Dates: start: 20090501, end: 20090501
  2. ALEVE [Suspect]
     Indication: JOINT SPRAIN
     Dosage: TOTAL DAILY DOSE: 220 MG  UNIT DOSE: 220 MG
     Route: 048
     Dates: start: 20090601

REACTIONS (1)
  - JOINT SPRAIN [None]
